FAERS Safety Report 8783862 (Version 1)
Quarter: 2012Q4

REPORT INFORMATION
  Report Type: Spontaneous
  Country: US (occurrence: None)
  Receive Date: 20120829
  Receipt Date: 20120829
  Transmission Date: 20130627
  Serious: Yes (Other)
  Sender: FDA-Public Use
  Company Number: FK201202462

PATIENT
  Age: 57 Year
  Sex: Male

DRUGS (4)
  1. OXALIPLATIN [Suspect]
     Indication: HEPATIC NEOPLASM
     Dosage: over 24 hours on days 1,8 and 15, Intravenous (not otherwise specified)
     Route: 048
  2. LEUCOVORIN  CALCIUM [Suspect]
     Dosage: 500 mg/ m2 , over 24 hours on days 1, 8 and 15, Intravenous (not otherwise  specified)
     Route: 042
  3. DOXCETAXEL [Suspect]
     Dosage: 25 mg/m2, over 30 minutes on days 1, 8 and 15, Intravenous (not otherwise specified)
     Route: 042
  4. FLOXURIDINE [Suspect]
     Dosage: 110 mg/ kg, over 24 hours on days 1, 8 and 15, Intravenous (not otherwise specified)
     Route: 042

REACTIONS (7)
  - Tumour lysis syndrome [None]
  - Renal failure acute [None]
  - Asthenia [None]
  - Hypotension [None]
  - Tachycardia [None]
  - Hepatomegaly [None]
  - Atrial fibrillation [None]
